FAERS Safety Report 4883288-2 (Version None)
Quarter: 2006Q1

REPORT INFORMATION
  Report Type: 
  Country: None (occurrence: None)
  Receive Date: 20060113
  Receipt Date: 20051226
  Transmission Date: 20060701
  Serious: Yes (Hospitalization)
  Sender: FDA-Public Use
  Company Number: 220825

PATIENT
  Sex: Male
  Weight: 70.2 kg

DRUGS (4)
  1. AVASTIN [Suspect]
     Indication: COLON CANCER
     Dosage: 5 MG/M2, Q3W, INTRAVENOUS
     Route: 042
     Dates: start: 20051130, end: 20051226
  2. OXALIPLATIN (OXALIPLATIN) [Suspect]
     Indication: COLON CANCER
     Dosage: 85 MG/M2, Q3W, INTRAVENOUS
     Route: 042
     Dates: start: 20051130
  3. LEUCOVORIN CALCIUM [Suspect]
     Indication: COLON CANCER
     Dosage: 200 MG/KG, INTRAVENOUS
     Route: 042
     Dates: start: 20051130
  4. FLUOROURACIL [Suspect]
     Indication: COLON CANCER
     Dosage: 400 MG/M2, INTRAVENOUS
     Route: 042
     Dates: start: 20051130

REACTIONS (1)
  - PNEUMOPERITONEUM [None]
